FAERS Safety Report 5607131-9 (Version None)
Quarter: 2008Q1

REPORT INFORMATION
  Report Type: 
  Country: None (occurrence: None)
  Receive Date: 20080129
  Receipt Date: 20080117
  Transmission Date: 20080703
  Serious: Yes (Hospitalization)
  Sender: FDA-Public Use
  Company Number: FR-PFIZER INC-2008005700

PATIENT
  Age: 66 Year
  Sex: Female

DRUGS (4)
  1. ALDACTONE [Suspect]
     Route: 048
  2. LEVOTHYROX [Suspect]
     Route: 048
  3. GINKOR FORT [Suspect]
     Dosage: TEXT:2 DOSE FORM
     Route: 048
  4. STABLON [Suspect]
     Dosage: TEXT:3 DOSE FORM
     Route: 048

REACTIONS (1)
  - MYALGIA [None]
